FAERS Safety Report 5308895-4 (Version None)
Quarter: 2007Q2

REPORT INFORMATION
  Report Type: 
  Country: None (occurrence: None)
  Receive Date: 20070426
  Receipt Date: 20070418
  Transmission Date: 20071010
  Serious: Yes (Hospitalization)
  Sender: FDA-Public Use
  Company Number: US-AMGEN-US215392

PATIENT
  Sex: Male

DRUGS (14)
  1. AMG 706 [Suspect]
     Indication: METASTATIC NEOPLASM
     Route: 048
     Dates: start: 20060922, end: 20070314
  2. PANITUMUMAB [Suspect]
     Indication: METASTATIC NEOPLASM
     Route: 042
     Dates: start: 20060922, end: 20070109
  3. PANITUMUMAB [Suspect]
     Route: 042
     Dates: start: 20070130, end: 20070222
  4. CISPLATIN [Suspect]
     Route: 042
     Dates: start: 20060922, end: 20070222
  5. GEMCITABINE HCL [Concomitant]
     Route: 042
     Dates: start: 20060922, end: 20070301
  6. METFORMIN HCL [Concomitant]
     Route: 048
  7. NEXIUM [Concomitant]
     Route: 048
  8. HYDROMORPHONE HCL [Concomitant]
     Route: 048
  9. LORAZEPAM [Concomitant]
     Route: 048
  10. AMBIEN [Concomitant]
     Route: 048
  11. OXYCONTIN [Concomitant]
     Route: 048
  12. MEGACE [Concomitant]
     Route: 048
  13. DECADRON [Concomitant]
  14. BACLOFEN [Concomitant]
     Route: 048

REACTIONS (2)
  - DEEP VEIN THROMBOSIS [None]
  - PULMONARY EMBOLISM [None]
